FAERS Safety Report 18147086 (Version 1)
Quarter: 2020Q3

REPORT INFORMATION
  Report Type: Spontaneous
  Country: JP (occurrence: JP)
  Receive Date: 20200814
  Receipt Date: 20200814
  Transmission Date: 20201103
  Serious: Yes (Hospitalization, Other)
  Sender: FDA-Public Use
  Company Number: JP-NOVAST LABORATORIES LTD.-2020NOV000289

PATIENT
  Age: 18 Year
  Sex: Female

DRUGS (5)
  1. METFORMIN [Suspect]
     Active Substance: METFORMIN HYDROCHLORIDE
     Indication: SUICIDE ATTEMPT
     Dosage: 64 TABLETS OF 250 MG, 16000 MG IN TOTAL
     Route: 065
  2. ATORVASTATIN [Suspect]
     Active Substance: ATORVASTATIN
     Indication: SUICIDE ATTEMPT
     Dosage: 1 TABLET OF 10 MG
     Route: 065
  3. DAPAGLIFLOZIN. [Suspect]
     Active Substance: DAPAGLIFLOZIN
     Indication: SUICIDE ATTEMPT
     Dosage: 5 TABLETS OF 5 MG
     Route: 065
  4. VILDAGLIPTIN [Suspect]
     Active Substance: VILDAGLIPTIN
     Indication: SUICIDE ATTEMPT
     Dosage: 26 TABLETS OF 50 MG, 1300 MG IN TOTAL
     Route: 065
  5. GLIMEPIRIDE. [Suspect]
     Active Substance: GLIMEPIRIDE
     Indication: SUICIDE ATTEMPT
     Dosage: 7 TABLETS OF 1 MG
     Route: 065

REACTIONS (3)
  - Compartment syndrome [Recovered/Resolved]
  - Capillary leak syndrome [Recovered/Resolved]
  - Intentional overdose [Unknown]
